FAERS Safety Report 23786723 (Version 1)
Quarter: 2024Q2

REPORT INFORMATION
  Report Type: Report from Study
  Country: US (occurrence: US)
  Receive Date: 20240426
  Receipt Date: 20240426
  Transmission Date: 20240717
  Serious: Yes (Other)
  Sender: FDA-Public Use
  Company Number: US-INSMED, INC.-2023-05007-US

PATIENT
  Sex: Female

DRUGS (1)
  1. ARIKAYCE [Suspect]
     Active Substance: AMIKACIN
     Indication: Mycobacterial infection
     Dosage: 590 MILLIGRAM, QD
     Route: 055

REACTIONS (5)
  - Fungal infection [Unknown]
  - Productive cough [Recovered/Resolved]
  - Drug ineffective [Unknown]
  - Refusal of treatment by patient [Unknown]
  - Product dose omission issue [Unknown]
